FAERS Safety Report 19656683 (Version 1)
Quarter: 2021Q3

REPORT INFORMATION
  Report Type: Spontaneous
  Country: FR (occurrence: FR)
  Receive Date: 20210804
  Receipt Date: 20210804
  Transmission Date: 20211014
  Serious: Yes (Hospitalization, Other)
  Sender: FDA-Public Use
  Company Number: FR-TEVA-2021-FR-1938492

PATIENT
  Age: 30 Year
  Sex: Male
  Weight: 100.5 kg

DRUGS (11)
  1. ACICLOVIR [Suspect]
     Active Substance: ACYCLOVIR
     Indication: MENINGOENCEPHALITIS HERPETIC
     Route: 065
     Dates: end: 20210519
  2. SOLIRIS [Suspect]
     Active Substance: ECULIZUMAB
     Dosage: 900 MG ON 05/20 THEN 1200 MG ON 05/28 AND 06/04
     Route: 065
  3. CELLCEPT [Suspect]
     Active Substance: MYCOPHENOLATE MOFETIL\MYCOPHENOLATE MOFETIL HYDROCHLORIDE
     Indication: GRAFT VERSUS HOST DISEASE
     Route: 065
     Dates: end: 202105
  4. CEFOTAXIME BASE [Suspect]
     Active Substance: CEFOTAXIME SODIUM
     Indication: BRAIN ABSCESS
     Dosage: 16 GRAM DAILY; 4 G/6 H
     Route: 065
  5. POSACONAZOLE [Suspect]
     Active Substance: POSACONAZOLE
     Indication: ASPERGILLUS INFECTION
     Dosage: 300 MILLIGRAM DAILY; 300 MG IN THE EVENING
     Route: 065
  6. LETERMOVIR [Suspect]
     Active Substance: LETERMOVIR
     Dosage: 240 MILLIGRAM DAILY; 240 MG / DAY
     Route: 065
  7. METRONIDAZOLE. [Suspect]
     Active Substance: METRONIDAZOLE
     Indication: BRAIN ABSCESS
     Dosage: 1.5 GRAM DAILY; 500 MG X 3 PER DAY
     Route: 065
  8. KEPPRA [Suspect]
     Active Substance: LEVETIRACETAM
     Dosage: 2 DOSAGE FORMS DAILY; 1 TAB X 2 PER DAY
  9. BACTRIM [Suspect]
     Active Substance: SULFAMETHOXAZOLE\TRIMETHOPRIM
     Indication: BRAIN ABSCESS
     Route: 065
  10. MYCOPHENOLATE SODIQUE [Suspect]
     Active Substance: MYCOPHENOLATE SODIUM
     Indication: GRAFT VERSUS HOST DISEASE
     Route: 065
     Dates: end: 20210615
  11. TEICOPLANINE [Suspect]
     Active Substance: TEICOPLANIN
     Route: 065
     Dates: end: 20210530

REACTIONS (2)
  - Neutropenia [Recovering/Resolving]
  - Thrombotic microangiopathy [Recovering/Resolving]

NARRATIVE: CASE EVENT DATE: 20210516
